FAERS Safety Report 4806381-9 (Version None)
Quarter: 2005Q4

REPORT INFORMATION
  Report Type: 
  Country: None (occurrence: None)
  Receive Date: 20051019
  Receipt Date: 20051006
  Transmission Date: 20060501
  Serious: Yes (Other)
  Sender: FDA-Public Use
  Company Number: 2005104136

PATIENT
  Sex: Female

DRUGS (2)
  1. DETROL LA [Suspect]
     Indication: ILL-DEFINED DISORDER
  2. OXYBUTYNIN CHLORIDE [Suspect]
     Indication: ILL-DEFINED DISORDER

REACTIONS (8)
  - ANHIDROSIS [None]
  - ARTERIAL OCCLUSIVE DISEASE [None]
  - BUCCAL MUCOSAL ROUGHENING [None]
  - BURNING SENSATION [None]
  - DRUG HYPERSENSITIVITY [None]
  - ECONOMIC PROBLEM [None]
  - FEELING HOT [None]
  - MYOCARDIAL INFARCTION [None]
